FAERS Safety Report 18353992 (Version 2)
Quarter: 2020Q4

REPORT INFORMATION
  Report Type: Spontaneous
  Country: JP (occurrence: JP)
  Receive Date: 20201007
  Receipt Date: 20201208
  Transmission Date: 20210114
  Serious: Yes (Other)
  Sender: FDA-Public Use
  Company Number: NVSJ2020JP009752

PATIENT
  Age: 31 Year
  Sex: Male

DRUGS (1)
  1. GILENYA [Suspect]
     Active Substance: FINGOLIMOD HYDROCHLORIDE
     Indication: MULTIPLE SCLEROSIS
     Dosage: UNK
     Route: 048

REACTIONS (9)
  - Cognitive disorder [Unknown]
  - Multiple sclerosis [Unknown]
  - Cerebral atrophy [Unknown]
  - CSF protein increased [Unknown]
  - Muscular weakness [Unknown]
  - Fatigue [Unknown]
  - Cerebellar ataxia [Unknown]
  - Malaise [Unknown]
  - Apathy [Unknown]
